FAERS Safety Report 23054166 (Version 1)
Quarter: 2023Q4

REPORT INFORMATION
  Report Type: Report from Study
  Country: NL (occurrence: NL)
  Receive Date: 20231011
  Receipt Date: 20231011
  Transmission Date: 20240109
  Serious: Yes (Hospitalization)
  Sender: FDA-Public Use
  Company Number: NL-BAYER-2023A140896

PATIENT
  Age: 72 Year
  Sex: Male

DRUGS (1)
  1. BETAFERON [Suspect]
     Active Substance: INTERFERON BETA-1B
     Indication: Multiple sclerosis
     Dosage: 250 ?G/ML, QOD
     Route: 058
     Dates: start: 20180726, end: 20230716

REACTIONS (1)
  - Abdominal wall abscess [Not Recovered/Not Resolved]

NARRATIVE: CASE EVENT DATE: 20230716
